FAERS Safety Report 7333720-X (Version None)
Quarter: 2011Q1

REPORT INFORMATION
  Report Type: 
  Country: None (occurrence: None)
  Receive Date: 20110306
  Receipt Date: 20110211
  Transmission Date: 20110831
  Serious: No
  Sender: FDA-Public Use
  Company Number: US-BAYER-2011-014824

PATIENT
  Sex: Female
  Weight: 73 kg

DRUGS (2)
  1. ATENOLOL [Concomitant]
  2. ALEVE (CAPLET) [Suspect]
     Indication: ANALGESIC THERAPY
     Dosage: DAILY, ONCE
     Route: 048
     Dates: start: 20110210, end: 20110210

REACTIONS (1)
  - DYSPEPSIA [None]
